FAERS Safety Report 16062250 (Version 1)
Quarter: 2019Q1

REPORT INFORMATION
  Report Type: Spontaneous
  Country: AU (occurrence: AU)
  Receive Date: 20190312
  Receipt Date: 20190312
  Transmission Date: 20190418
  Serious: Yes (Other)
  Sender: FDA-Public Use
  Company Number: AU-ROCHE-2280361

PATIENT
  Age: 29 Year
  Sex: Female

DRUGS (9)
  1. TACROLIMUS. [Suspect]
     Active Substance: TACROLIMUS
     Indication: ANTIVIRAL TREATMENT
     Route: 065
  2. VALGANCICLOVIR. [Suspect]
     Active Substance: VALGANCICLOVIR
     Indication: ANTIVIRAL TREATMENT
     Route: 065
  3. MYCOPHENOLATE MOFETIL. [Suspect]
     Active Substance: MYCOPHENOLATE MOFETIL
     Indication: ANTIVIRAL TREATMENT
     Route: 065
  4. GANCICLOVIR. [Suspect]
     Active Substance: GANCICLOVIR
     Indication: ANTIVIRAL TREATMENT
     Route: 065
  5. IVIG [Suspect]
     Active Substance: HUMAN IMMUNOGLOBULIN G
     Indication: ANTIVIRAL TREATMENT
     Route: 065
  6. FOSCARNET [Suspect]
     Active Substance: FOSCARNET
     Indication: ANTIVIRAL TREATMENT
     Route: 065
  7. LEFLUNOMIDE. [Suspect]
     Active Substance: LEFLUNOMIDE
     Indication: ANTIVIRAL TREATMENT
     Route: 065
  8. EVEROLIMUS. [Suspect]
     Active Substance: EVEROLIMUS
     Indication: ANTIVIRAL TREATMENT
     Route: 065
  9. CYCLOSPORIN [Suspect]
     Active Substance: CYCLOSPORINE
     Indication: ANTIVIRAL TREATMENT
     Route: 065

REACTIONS (1)
  - Drug resistance [Recovering/Resolving]
